FAERS Safety Report 6080726-7 (Version None)
Quarter: 2009Q1

REPORT INFORMATION
  Report Type: 
  Country: None (occurrence: None)
  Receive Date: 20090217
  Receipt Date: 20090209
  Transmission Date: 20090719
  Serious: Yes (Life-Threatening, Hospitalization)
  Sender: FDA-Public Use
  Company Number: JP-ABBOTT-09P-087-0501942-00

PATIENT
  Sex: Male

DRUGS (3)
  1. KLARICID TABLETS [Suspect]
     Indication: UPPER RESPIRATORY TRACT INFLAMMATION
     Route: 048
     Dates: start: 20090109, end: 20090111
  2. KLARICID TABLETS [Suspect]
     Indication: SYSTEMIC INFLAMMATORY RESPONSE SYNDROME
  3. ACETAMINOPHEN [Concomitant]
     Indication: UPPER RESPIRATORY TRACT INFLAMMATION
     Dosage: 400 MG DAILY
     Route: 048
     Dates: start: 20090109, end: 20090111

REACTIONS (7)
  - C-REACTIVE PROTEIN INCREASED [None]
  - CARDIAC FAILURE CONGESTIVE [None]
  - PROTEIN TOTAL DECREASED [None]
  - RASH [None]
  - SICK SINUS SYNDROME [None]
  - SYSTEMIC INFLAMMATORY RESPONSE SYNDROME [None]
  - WHITE BLOOD CELL COUNT INCREASED [None]
